FAERS Safety Report 14763120 (Version 1)
Quarter: 2018Q2

REPORT INFORMATION
  Report Type: Report from Study
  Country: None (occurrence: BR)
  Receive Date: 20180416
  Receipt Date: 20180416
  Transmission Date: 20180711
  Serious: Yes (Other)
  Sender: FDA-Public Use
  Company Number: BR-ABBVIE-18K-020-2322764-00

PATIENT
  Sex: Female
  Weight: 89 kg

DRUGS (2)
  1. HUMIRA [Suspect]
     Active Substance: ADALIMUMAB
     Indication: ANKYLOSING SPONDYLITIS
     Route: 058
     Dates: start: 20170828, end: 201710
  2. PREDNISOLONE. [Concomitant]
     Active Substance: PREDNISOLONE
     Indication: SPONDYLITIS

REACTIONS (7)
  - Nephritis [Recovering/Resolving]
  - Proteinuria [Recovering/Resolving]
  - Weight increased [Recovering/Resolving]
  - Drug effect incomplete [Not Recovered/Not Resolved]
  - Swelling [Recovering/Resolving]
  - Pain [Not Recovered/Not Resolved]
  - Hypertension [Recovering/Resolving]

NARRATIVE: CASE EVENT DATE: 2017
